FAERS Safety Report 8524963-8 (Version None)
Quarter: 2012Q3

REPORT INFORMATION
  Report Type: 
  Country: None (occurrence: None)
  Receive Date: 20120720
  Receipt Date: 20120712
  Transmission Date: 20120928
  Serious: Yes (Other)
  Sender: FDA-Public Use
  Company Number: BR-SANOFI-AVENTIS-2012SA048182

PATIENT
  Age: 71 Year
  Sex: Male
  Weight: 54.3 kg

DRUGS (5)
  1. DEXAMETHASONE [Concomitant]
     Dates: start: 20120701
  2. KYTRIL [Concomitant]
     Dates: start: 20120701
  3. RANITIDINE [Concomitant]
     Dates: start: 20120701
  4. JEVTANA KIT [Suspect]
     Indication: PROSTATE CANCER
     Route: 065
     Dates: start: 20120613
  5. DIPHENHYDRAMINE HCL [Concomitant]
     Dates: start: 20120701

REACTIONS (5)
  - PARAESTHESIA [None]
  - PAIN IN EXTREMITY [None]
  - EXTRAVASATION [None]
  - HYPERAEMIA [None]
  - HYPOAESTHESIA [None]
